FAERS Safety Report 6817340-9 (Version None)
Quarter: 2010Q3

REPORT INFORMATION
  Report Type: 
  Country: None (occurrence: None)
  Receive Date: 20100706
  Receipt Date: 20100628
  Transmission Date: 20110219
  Serious: Yes (Disabling)
  Sender: FDA-Public Use
  Company Number: CA-SANOFI-AVENTIS-2010SA037210

PATIENT
  Sex: Female

DRUGS (1)
  1. NORITATE [Suspect]
     Route: 003
     Dates: start: 20100510

REACTIONS (4)
  - DERMATITIS CONTACT [None]
  - ERYTHEMA [None]
  - PAIN [None]
  - SWELLING [None]
